FAERS Safety Report 22091456 (Version 5)
Quarter: 2023Q4

REPORT INFORMATION
  Report Type: Report from Study
  Country: US (occurrence: US)
  Receive Date: 20230314
  Receipt Date: 20231229
  Transmission Date: 20240110
  Serious: Yes (Hospitalization, Other)
  Sender: FDA-Public Use
  Company Number: US-UCBSA-2023012242

PATIENT
  Sex: Male

DRUGS (1)
  1. BRIVARACETAM [Suspect]
     Active Substance: BRIVARACETAM
     Indication: Seizure
     Dosage: 50 MILLIGRAM, 2X/DAY (BID)
     Route: 048
     Dates: start: 20220916

REACTIONS (7)
  - Urinary tract infection [Recovered/Resolved]
  - Bladder catheterisation [Recovered/Resolved]
  - Accident [Unknown]
  - Cholecystitis infective [Unknown]
  - End stage renal disease [Not Recovered/Not Resolved]
  - Hypersomnia [Recovered/Resolved]
  - Rehabilitation therapy [Unknown]

NARRATIVE: CASE EVENT DATE: 20230101
